FAERS Safety Report 25847206 (Version 1)
Quarter: 2025Q3

REPORT INFORMATION
  Report Type: Spontaneous
  Country: US (occurrence: US)
  Receive Date: 20250925
  Receipt Date: 20250925
  Transmission Date: 20251020
  Serious: Yes (Other)
  Sender: AMGEN
  Company Number: US-AMGEN-USASP2025182601

PATIENT
  Sex: Female

DRUGS (7)
  1. PREDNISONE [Suspect]
     Active Substance: PREDNISONE
     Indication: Hyperinsulinaemic hypoglycaemia
     Route: 065
  2. SUNITINIB [Suspect]
     Active Substance: SUNITINIB
     Indication: Insulinoma
     Route: 065
  3. SUNITINIB [Suspect]
     Active Substance: SUNITINIB
     Indication: Pancreatic neuroendocrine tumour metastatic
     Dosage: 12.5 MILLIGRAM, QD
     Route: 065
  4. ALPELISIB [Suspect]
     Active Substance: ALPELISIB
     Indication: Hyperinsulinaemic hypoglycaemia
     Route: 065
  5. ALPELISIB [Suspect]
     Active Substance: ALPELISIB
     Dosage: UNK, QD (LOWER DOSE (BETWEEN 50 AND 125 MG)
     Route: 065
  6. ALPELISIB [Suspect]
     Active Substance: ALPELISIB
     Dosage: 50 MILLIGRAM, QD
     Route: 065
  7. VERAPAMIL [Concomitant]
     Active Substance: VERAPAMIL HYDROCHLORIDE
     Indication: Hyperinsulinaemic hypoglycaemia

REACTIONS (9)
  - Gastric ulcer [Unknown]
  - Upper gastrointestinal haemorrhage [Recovered/Resolved]
  - Weight increased [Recovered/Resolved]
  - Alopecia [Unknown]
  - Weight decreased [Unknown]
  - Hypoglycaemia [Recovering/Resolving]
  - Hyperglycaemia [Recovered/Resolved]
  - Drug ineffective for unapproved indication [Unknown]
  - Off label use [Unknown]
